FAERS Safety Report 7111048-0 (Version None)
Quarter: 2010Q4

REPORT INFORMATION
  Report Type: 
  Country: None (occurrence: None)
  Receive Date: 20101118
  Receipt Date: 20101111
  Transmission Date: 20110411
  Serious: Yes (Hospitalization)
  Sender: FDA-Public Use
  Company Number: DE-TEVA-244675ISR

PATIENT
  Age: 80 Year
  Sex: Male
  Weight: 81.1 kg

DRUGS (2)
  1. PANTOPRAZOLE [Interacting]
     Indication: GASTRITIS
     Route: 048
     Dates: start: 20100201
  2. CEFACLOR [Suspect]
     Indication: URINARY TRACT INFECTION
     Route: 048
     Dates: start: 20100423, end: 20100506

REACTIONS (7)
  - CHOLESTASIS [None]
  - CLOSTRIDIUM DIFFICILE COLITIS [None]
  - DIARRHOEA [None]
  - GASTROENTERITIS CLOSTRIDIAL [None]
  - HEPATIC CIRRHOSIS [None]
  - METASTASES TO PERITONEUM [None]
  - PANCREATIC CARCINOMA [None]
